FAERS Safety Report 8955044 (Version 1)
Quarter: 2012Q4

REPORT INFORMATION
  Report Type: 
  Country: FR (occurrence: FR)
  Receive Date: 20121207
  Receipt Date: 20121207
  Transmission Date: 20130627
  Serious: Yes (Hospitalization)
  Sender: FDA-Public Use
  Company Number: FR-ASTRAZENECA-2012SE90214

PATIENT
  Age: 27871 Day
  Sex: Male

DRUGS (8)
  1. CRESTOR [Suspect]
     Route: 048
     Dates: start: 2011, end: 201201
  2. CRESTOR [Suspect]
     Route: 048
     Dates: start: 201201, end: 20120506
  3. CRESTOR [Suspect]
     Route: 048
     Dates: start: 20120507, end: 20120802
  4. ALEPSAL [Concomitant]
     Route: 048
     Dates: start: 2011
  5. TRILEPTAL [Concomitant]
     Route: 048
     Dates: start: 2011
  6. LERCAPRESS [Concomitant]
     Route: 048
     Dates: start: 2011
  7. PREVISCAN [Concomitant]
     Route: 048
     Dates: start: 2011, end: 20120802
  8. PREVISCAN [Concomitant]
     Dates: start: 20120804

REACTIONS (3)
  - Renal failure acute [Recovered/Resolved]
  - Infection [Unknown]
  - Rhabdomyolysis [Recovered/Resolved]
